FAERS Safety Report 19514265 (Version 2)
Quarter: 2021Q3

REPORT INFORMATION
  Report Type: Spontaneous
  Country: US (occurrence: US)
  Receive Date: 20210709
  Receipt Date: 20210724
  Transmission Date: 20211014
  Serious: Yes (Other)
  Sender: FDA-Public Use
  Company Number: US-SA-2021SA217533

PATIENT
  Age: 78 Year
  Sex: Female

DRUGS (4)
  1. PETROLEUM JELLY [Concomitant]
     Active Substance: PETROLATUM
     Dosage: UNK
     Route: 061
  2. SALICYLIC ACID. [Suspect]
     Active Substance: SALICYLIC ACID
     Dosage: SALICYLIC ACID POWDER
     Route: 061
  3. OLIVE OIL [Concomitant]
     Active Substance: OLIVE OIL
     Dosage: UNK
     Route: 061
  4. SULFUR. [Concomitant]
     Active Substance: SULFUR
     Dosage: SULFUR POWDER
     Route: 061

REACTIONS (8)
  - Analgesic drug level increased [Recovered/Resolved]
  - Metabolic acidosis [Unknown]
  - Tinnitus [Unknown]
  - Diplopia [Unknown]
  - Toxicity to various agents [Recovered/Resolved]
  - Respiratory alkalosis [Unknown]
  - Asthenia [Unknown]
  - Confusional state [Unknown]
